FAERS Safety Report 9751046 (Version 1)
Quarter: 2013Q4

REPORT INFORMATION
  Report Type: Spontaneous
  Country: US (occurrence: US)
  Receive Date: 20131212
  Receipt Date: 20131212
  Transmission Date: 20140711
  Serious: Yes (Other)
  Sender: FDA-Public Use
  Company Number: US-TEVA-399068USA

PATIENT
  Age: 26 Year
  Sex: Female
  Weight: 64.47 kg

DRUGS (2)
  1. PARAGARD 380A [Suspect]
     Indication: CONTRACEPTION
     Route: 015
  2. CLARITIN [Concomitant]
     Indication: SEASONAL ALLERGY

REACTIONS (3)
  - Device dislocation [Not Recovered/Not Resolved]
  - Vaginal odour [Not Recovered/Not Resolved]
  - Dysmenorrhoea [Not Recovered/Not Resolved]
